FAERS Safety Report 7816285 (Version 4)
Quarter: 2013Q2

REPORT INFORMATION
  Report Type: Report from Study
  Country: IT (occurrence: IT)
  Receive Date: 20110217
  Receipt Date: 20130501
  Transmission Date: 20140414
  Serious: Yes (Other)
  Sender: FDA-Public Use
  Company Number: IT-CELGENEUS-083-C5013-11021434

PATIENT
  Age: 70 Year
  Sex: Male
  Weight: 89 kg

DRUGS (4)
  1. CC-5013 [Suspect]
     Indication: PLASMA CELL MYELOMA
     Dosage: 10 MILLIGRAM
     Route: 048
     Dates: start: 20070621, end: 20100309
  2. CC-5013 [Suspect]
     Dosage: 25 MILLIGRAM
     Route: 048
     Dates: start: 20100407, end: 20101213
  3. MELPHALAN [Suspect]
     Indication: PLASMA CELL MYELOMA
     Dosage: 14 MILLIGRAM
     Route: 065
     Dates: start: 20070621, end: 20080330
  4. PREDNISONE [Suspect]
     Indication: PLASMA CELL MYELOMA
     Dosage: 166 MILLIGRAM
     Route: 065
     Dates: start: 20070621, end: 20080330

REACTIONS (1)
  - Rectal adenocarcinoma [Recovered/Resolved with Sequelae]
